FAERS Safety Report 15935209 (Version 1)
Quarter: 2019Q1

REPORT INFORMATION
  Report Type: Spontaneous
  Country: US (occurrence: US)
  Receive Date: 20190207
  Receipt Date: 20190207
  Transmission Date: 20190417
  Serious: No
  Sender: FDA-Public Use
  Company Number: US-INCYTE CORPORATION-2019IN000656

PATIENT

DRUGS (1)
  1. JAKAFI [Suspect]
     Active Substance: RUXOLITINIB
     Indication: GRAFT VERSUS HOST DISEASE
     Dosage: 5 MG
     Route: 065
     Dates: start: 20180723

REACTIONS (5)
  - Rash [Unknown]
  - Gastrointestinal disorder [Unknown]
  - Off label use [Unknown]
  - Product use issue [Unknown]
  - Product dose omission [Unknown]
